FAERS Safety Report 9187873 (Version 2)
Quarter: 2013Q2

REPORT INFORMATION
  Report Type: Spontaneous
  Country: US (occurrence: US)
  Receive Date: 20130325
  Receipt Date: 20130603
  Transmission Date: 20140414
  Serious: No
  Sender: FDA-Public Use
  Company Number: US-009507513-1303USA009928

PATIENT
  Age: 19 Year
  Sex: Female
  Weight: 61.68 kg

DRUGS (4)
  1. IMPLANON [Suspect]
     Indication: CONTRACEPTION
     Dosage: 1 DF, EVERY 3 YEARS
     Route: 059
     Dates: start: 20101102
  2. CHOLESTYRAMINE RESIN [Concomitant]
     Dosage: AS DIRECTED
  3. DICYCLOMINE HYDROCHLORIDE [Concomitant]
     Route: 048
  4. PROVENTIL [Concomitant]
     Route: 055

REACTIONS (4)
  - Menorrhagia [Not Recovered/Not Resolved]
  - Metrorrhagia [Not Recovered/Not Resolved]
  - Menstruation irregular [Not Recovered/Not Resolved]
  - Implant site pruritus [Not Recovered/Not Resolved]
